FAERS Safety Report 11448160 (Version 1)
Quarter: 2015Q3

REPORT INFORMATION
  Report Type: Spontaneous
  Country: US (occurrence: US)
  Receive Date: 20150902
  Receipt Date: 20150902
  Transmission Date: 20151125
  Serious: Yes (Hospitalization)
  Sender: FDA-Public Use
  Company Number: US-ASTRAZENECA-2015SE82912

PATIENT
  Sex: Male

DRUGS (1)
  1. CRESTOR [Suspect]
     Active Substance: ROSUVASTATIN CALCIUM
     Dosage: UNKNOWN DOSE, DAILY
     Route: 048
     Dates: start: 2010

REACTIONS (2)
  - Gait disturbance [Unknown]
  - Myalgia [Unknown]

NARRATIVE: CASE EVENT DATE: 2010
